FAERS Safety Report 8492982 (Version 4)
Quarter: 2012Q4

REPORT INFORMATION
  Report Type: 
  Country: US (occurrence: US)
  Receive Date: 20120404
  Receipt Date: 20121011
  Transmission Date: 20130627
  Serious: Yes (Hospitalization)
  Sender: FDA-Public Use
  Company Number: US-SANOFI-AVENTIS-2012SA020354

PATIENT
  Age: 59 Year
  Sex: Male

DRUGS (15)
  1. FUROSEMIDE [Suspect]
  2. BLINDED THERAPY [Suspect]
     Indication: TYPE II DIABETES MELLITUS
     Dates: start: 20110927, end: 20111206
  3. BLINDED THERAPY [Suspect]
     Indication: TYPE II DIABETES MELLITUS
     Dates: start: 20110325, end: 20110708
  4. TORASEMIDE [Suspect]
  5. SPIRONOLACTONE [Suspect]
  6. CARVEDILOL [Suspect]
  7. ASPIRIN [Concomitant]
  8. EZETIMIBE [Concomitant]
  9. CHOLESTEROL- AND TRIGLYCERIDE REDUCERS [Concomitant]
  10. ANTITHROMBOTIC AGENTS [Concomitant]
  11. DIURETICS [Concomitant]
  12. GLYCERYL TRINITRATE [Concomitant]
  13. ALL OTHER THERAPEUTIC PRODUCTS [Concomitant]
  14. BETA BLOCKING AGENTS [Concomitant]
  15. ANTITHROMBOTIC AGENTS [Concomitant]

REACTIONS (3)
  - Irritable bowel syndrome [Recovered/Resolved]
  - Renal failure acute [Recovered/Resolved]
  - Hypotension [Recovered/Resolved]
